FAERS Safety Report 6240086-5 (Version None)
Quarter: 2009Q2

REPORT INFORMATION
  Report Type: 
  Country: None (occurrence: None)
  Receive Date: 20090618
  Receipt Date: 20090618
  Transmission Date: 20091009
  Serious: No
  Sender: FDA-Public Use
  Company Number: None

PATIENT
  Age: 55 Year
  Sex: Male
  Weight: 90.7194 kg

DRUGS (4)
  1. ZICAM ORAL MIST [Suspect]
     Indication: INFLUENZA
     Dosage: SPRAYS IN MOUTH EVERY FEW HRS PO
     Route: 048
     Dates: start: 20090503, end: 20090512
  2. ZICAM ORAL MIST [Suspect]
     Indication: NASOPHARYNGITIS
     Dosage: SPRAYS IN MOUTH EVERY FEW HRS PO
     Route: 048
     Dates: start: 20090503, end: 20090512
  3. ZICAM RAPIDMELTS [Suspect]
     Indication: INFLUENZA
     Dosage: 1 TAB EVERY FEW HRS PO
     Route: 048
     Dates: start: 20090503, end: 20090512
  4. ZICAM RAPIDMELTS [Suspect]
     Indication: NASOPHARYNGITIS
     Dosage: 1 TAB EVERY FEW HRS PO
     Route: 048
     Dates: start: 20090503, end: 20090512

REACTIONS (3)
  - AGEUSIA [None]
  - ANOSMIA [None]
  - DRUG INEFFECTIVE [None]
